FAERS Safety Report 20773891 (Version 2)
Quarter: 2022Q2

REPORT INFORMATION
  Report Type: Spontaneous
  Country: JP (occurrence: JP)
  Receive Date: 20220502
  Receipt Date: 20220530
  Transmission Date: 20220721
  Serious: Yes (Hospitalization, Other)
  Sender: FDA-Public Use
  Company Number: JP-GLAXOSMITHKLINE-JP2022JPN069627

PATIENT

DRUGS (3)
  1. ATOVAQUONE [Suspect]
     Active Substance: ATOVAQUONE
     Indication: Antifungal prophylaxis
     Dosage: 750 MG, 1D
     Route: 048
  2. EMTRICITABINE\TENOFOVIR ALAFENAMIDE FUMARATE [Concomitant]
     Active Substance: EMTRICITABINE\TENOFOVIR ALAFENAMIDE FUMARATE
     Indication: Antiviral treatment
     Dosage: FTC 200MG/TAF 25MG, QD
     Route: 048
  3. RALTEGRAVIR [Concomitant]
     Active Substance: RALTEGRAVIR
     Indication: Antiviral treatment
     Dosage: 800 MG, QD
     Route: 048

REACTIONS (7)
  - Autoimmune haemolytic anaemia [Recovered/Resolved]
  - Pancytopenia [Recovered/Resolved]
  - Malaise [Unknown]
  - Dyspnoea exertional [Unknown]
  - Nasopharyngitis [Unknown]
  - Prescribed underdose [Unknown]
  - Off label use [Unknown]
